FAERS Safety Report 5385180-6 (Version None)
Quarter: 2007Q3

REPORT INFORMATION
  Report Type: 
  Country: None (occurrence: None)
  Receive Date: 20070706
  Receipt Date: 20060907
  Transmission Date: 20080115
  Serious: Yes (Hospitalization)
  Sender: FDA-Public Use
  Company Number: M-06-0751

PATIENT
  Age: 69 Year
  Sex: Male

DRUGS (12)
  1. PACERONE [Suspect]
     Indication: ATRIAL FIBRILLATION
     Dosage: 400 MG, TID, PO
     Route: 048
     Dates: start: 20060701, end: 20060907
  2. ALBUTEROL [Concomitant]
  3. LIPITOR [Concomitant]
  4. LASIX [Concomitant]
  5. KLOR-CON [Concomitant]
  6. COUMADIN [Concomitant]
  7. DIGITEK [Concomitant]
  8. FLOMAX [Concomitant]
  9. TOPROL-XL [Concomitant]
  10. LISINOPRIL [Concomitant]
  11. SPIRIVA [Concomitant]
  12. VICODIN [Concomitant]

REACTIONS (4)
  - CARDIAC FAILURE CONGESTIVE [None]
  - CHEST X-RAY ABNORMAL [None]
  - DYSPNOEA [None]
  - WHEEZING [None]
